FAERS Safety Report 24335150 (Version 1)
Quarter: 2024Q3

REPORT INFORMATION
  Report Type: Spontaneous
  Country: CO (occurrence: CO)
  Receive Date: 20240918
  Receipt Date: 20240918
  Transmission Date: 20241017
  Serious: Yes (Other)
  Sender: NOVARTIS
  Company Number: CO-002147023-NVSC2024CO184184

PATIENT
  Sex: Female

DRUGS (1)
  1. RIBOCICLIB [Suspect]
     Active Substance: RIBOCICLIB
     Indication: Product used for unknown indication
     Dosage: UNK (FOR 3 MONTHS)
     Route: 065

REACTIONS (4)
  - Mucocutaneous toxicity [Unknown]
  - Toxic skin eruption [Unknown]
  - Skin lesion [Unknown]
  - Pruritus [Unknown]
